FAERS Safety Report 13889748 (Version 2)
Quarter: 2017Q3

REPORT INFORMATION
  Report Type: Report from Study
  Country: US (occurrence: US)
  Receive Date: 20170822
  Receipt Date: 20170824
  Transmission Date: 20171127
  Serious: Yes (Death, Hospitalization, Other)
  Sender: FDA-Public Use
  Company Number: US-BRISTOL-MYERS SQUIBB COMPANY-BMS-2017-074961

PATIENT
  Sex: Female

DRUGS (4)
  1. 5-AZACYTIDINE [Suspect]
     Active Substance: AZACITIDINE
     Indication: MYELODYSPLASTIC SYNDROME
     Dosage: 75 MG/M2, UNK
     Route: 042
  2. IPILIMUMAB [Suspect]
     Active Substance: IPILIMUMAB
     Indication: MYELODYSPLASTIC SYNDROME
     Dosage: 3 MG/KG, UNK
     Route: 042
  3. IPILIMUMAB [Suspect]
     Active Substance: IPILIMUMAB
     Indication: PRODUCT USED FOR UNKNOWN INDICATION
     Dosage: 175 MG, ONCE
     Route: 042
     Dates: start: 20170624
  4. 5-AZACYTIDINE [Suspect]
     Active Substance: AZACITIDINE
     Indication: PRODUCT USED FOR UNKNOWN INDICATION
     Dosage: 120 MG, DAILY X 5
     Route: 042
     Dates: start: 20170730

REACTIONS (2)
  - Respiratory failure [Not Recovered/Not Resolved]
  - Lung infection [Fatal]

NARRATIVE: CASE EVENT DATE: 20170726
